FAERS Safety Report 13745710 (Version 18)
Quarter: 2018Q2

REPORT INFORMATION
  Report Type: Report from Study
  Country: CA (occurrence: CA)
  Receive Date: 20170712
  Receipt Date: 20180515
  Transmission Date: 20180711
  Serious: Yes (Other)
  Sender: FDA-Public Use
  Company Number: CA-SA-2016SA226223

PATIENT
  Age: 35 Year
  Sex: Male
  Weight: 68 kg

DRUGS (9)
  1. METHYLPREDNISOLONE. [Concomitant]
     Active Substance: METHYLPREDNISOLONE
     Indication: PREMEDICATION
     Route: 042
     Dates: start: 20161205, end: 20161208
  2. VITAMIN D [Concomitant]
     Active Substance: CHOLECALCIFEROL
     Dates: start: 2013
  3. LEMTRADA [Suspect]
     Active Substance: ALEMTUZUMAB
     Indication: RELAPSING-REMITTING MULTIPLE SCLEROSIS
     Route: 041
     Dates: start: 20161207, end: 20161208
  4. REACTINE [CETIRIZINE HYDROCHLORIDE] [Concomitant]
     Active Substance: CETIRIZINE HYDROCHLORIDE
     Indication: PREMEDICATION
     Route: 048
     Dates: start: 20161204, end: 20161208
  5. ACYCLOVIR. [Concomitant]
     Active Substance: ACYCLOVIR
     Indication: PREMEDICATION
     Route: 048
     Dates: start: 20161205, end: 20170107
  6. LEMTRADA [Suspect]
     Active Substance: ALEMTUZUMAB
     Indication: RELAPSING-REMITTING MULTIPLE SCLEROSIS
     Route: 041
     Dates: start: 20161205, end: 20161205
  7. ZANTAC [Concomitant]
     Active Substance: RANITIDINE HYDROCHLORIDE
     Indication: PREMEDICATION
     Route: 048
     Dates: start: 20161205, end: 20161208
  8. ZOPICLONE [Concomitant]
     Active Substance: ZOPICLONE
     Dosage: DOSE: 7.5?AT BEDTIME AS NEEDED
     Route: 048
  9. ACETAMINOPHEN. [Concomitant]
     Active Substance: ACETAMINOPHEN
     Indication: PREMEDICATION
     Route: 048
     Dates: start: 20161205

REACTIONS (54)
  - Hyperthyroidism [Unknown]
  - Red blood cell rouleaux formation present [Unknown]
  - Specific gravity urine increased [Not Recovered/Not Resolved]
  - Metamyelocyte percentage increased [Not Recovered/Not Resolved]
  - Blood urine present [Recovered/Resolved]
  - Lymphocyte percentage decreased [Not Recovered/Not Resolved]
  - Hypoaesthesia [Not Recovered/Not Resolved]
  - Blood thyroid stimulating hormone decreased [Not Recovered/Not Resolved]
  - Myelocytosis [Unknown]
  - Myelocyte count increased [Not Recovered/Not Resolved]
  - Myelocyte percentage increased [Not Recovered/Not Resolved]
  - Gait disturbance [Not Recovered/Not Resolved]
  - Weight decreased [Unknown]
  - Expanded disability status scale score increased [Not Recovered/Not Resolved]
  - Urine bilirubin decreased [Recovered/Resolved]
  - Haemoglobin decreased [Recovered/Resolved]
  - Fatigue [Not Recovered/Not Resolved]
  - Lymphocyte count decreased [Not Recovered/Not Resolved]
  - White blood cell count decreased [Recovered/Resolved]
  - Glucose urine present [Not Recovered/Not Resolved]
  - Thyroiditis [Recovering/Resolving]
  - Promyelocyte count increased [Not Recovered/Not Resolved]
  - Urine leukocyte esterase positive [Not Recovered/Not Resolved]
  - Painful respiration [Recovered/Resolved]
  - Head discomfort [Recovered/Resolved]
  - Haematocrit decreased [Recovered/Resolved]
  - Basophil count increased [Recovered/Resolved]
  - Band neutrophil percentage increased [Not Recovered/Not Resolved]
  - Metamyelocyte count increased [Not Recovered/Not Resolved]
  - Muscular weakness [Not Recovered/Not Resolved]
  - Tri-iodothyronine free increased [Not Recovered/Not Resolved]
  - Eosinophil percentage increased [Recovered/Resolved]
  - Bacterial test [Recovered/Resolved]
  - Band neutrophil count increased [Not Recovered/Not Resolved]
  - Lymphocyte count increased [Recovered/Resolved]
  - Thyroxine free increased [Recovered/Resolved]
  - Neutrophil count increased [Not Recovered/Not Resolved]
  - Chronic myeloid leukaemia [Recovering/Resolving]
  - Fatigue [Unknown]
  - Musculoskeletal pain [Unknown]
  - Increased appetite [Unknown]
  - Leukocytosis [Unknown]
  - Urinary casts [Unknown]
  - Insomnia [Not Recovered/Not Resolved]
  - Headache [Recovered/Resolved]
  - White blood cell count increased [Recovered/Resolved]
  - Insomnia [Unknown]
  - Basophil percentage increased [Recovered/Resolved]
  - Urine analysis abnormal [Not Recovered/Not Resolved]
  - Red cell distribution width increased [Recovered/Resolved]
  - Neutrophil percentage increased [Not Recovered/Not Resolved]
  - White blood cell count increased [Not Recovered/Not Resolved]
  - Influenza [Recovered/Resolved]
  - Crystal urine present [Not Recovered/Not Resolved]

NARRATIVE: CASE EVENT DATE: 20161205
